FAERS Safety Report 6788086-0 (Version None)
Quarter: 2010Q2

REPORT INFORMATION
  Report Type: 
  Country: None (occurrence: None)
  Receive Date: 20100623
  Receipt Date: 20080216
  Transmission Date: 20101027
  Serious: No
  Sender: FDA-Public Use
  Company Number: US-PFIZER INC-2007108654

PATIENT
  Sex: Female
  Weight: 63.6 kg

DRUGS (6)
  1. COLESTID [Suspect]
     Indication: BLOOD CHOLESTEROL INCREASED
     Dates: start: 20070101, end: 20071201
  2. DRUG, UNSPECIFIED [Concomitant]
     Indication: THYROID DISORDER
  3. ACETYLSALICYLIC ACID [Concomitant]
  4. DILTIAZEM [Concomitant]
  5. COZAAR [Concomitant]
  6. MAXZIDE [Concomitant]

REACTIONS (1)
  - EYE INFLAMMATION [None]
